FAERS Safety Report 14132814 (Version 1)
Quarter: 2017Q4

REPORT INFORMATION
  Report Type: Spontaneous
  Country: US (occurrence: US)
  Receive Date: 20171026
  Receipt Date: 20171026
  Transmission Date: 20180321
  Serious: No
  Sender: FDA-Public Use
  Company Number: None

PATIENT
  Age: 51 Year
  Sex: Female
  Weight: 106.8 kg

DRUGS (2)
  1. HUMATE-P [Suspect]
     Active Substance: HUMAN COAGULATION FACTOR VIII/VON WILLEBRAND FACTOR COMPLEX
     Indication: VON WILLEBRAND^S DISEASE
     Dosage: ?          OTHER FREQUENCY:EVERY OTHER DAY;?
     Route: 042
     Dates: start: 20170913, end: 20170925
  2. HUMATE-P [Suspect]
     Active Substance: HUMAN COAGULATION FACTOR VIII/VON WILLEBRAND FACTOR COMPLEX
     Indication: VON WILLEBRAND^S DISEASE
     Dosage: ?          OTHER FREQUENCY:EVERY OTHER DAY;?
     Route: 042
     Dates: start: 20170913, end: 20170925

REACTIONS (7)
  - Headache [None]
  - Flushing [None]
  - Arthralgia [None]
  - Throat irritation [None]
  - Dysphonia [None]
  - Tongue disorder [None]
  - Wheezing [None]

NARRATIVE: CASE EVENT DATE: 20170925
